FAERS Safety Report 7415373-5 (Version None)
Quarter: 2011Q2

REPORT INFORMATION
  Report Type: 
  Country: None (occurrence: None)
  Receive Date: 20110414
  Receipt Date: 20110204
  Transmission Date: 20111010
  Serious: Yes (Hospitalization)
  Sender: FDA-Public Use
  Company Number: B0698737A

PATIENT
  Sex: Female
  Weight: 42 kg

DRUGS (5)
  1. LANSOPRAZOLE [Concomitant]
     Dosage: 30MG PER DAY
     Route: 048
     Dates: start: 20080320
  2. FUROSEMIDE [Concomitant]
     Dosage: 20MG PER DAY
     Route: 048
     Dates: start: 20080320
  3. TEPRENONE [Concomitant]
     Dosage: 150MG PER DAY
     Route: 048
     Dates: start: 20080320
  4. XELODA [Suspect]
     Route: 048
     Dates: start: 20101224, end: 20110104
  5. TYKERB [Suspect]
     Indication: BREAST CANCER
     Dosage: 1250MG PER DAY
     Route: 048
     Dates: start: 20101224, end: 20110104

REACTIONS (4)
  - MALAISE [None]
  - DIARRHOEA [None]
  - NAUSEA [None]
  - DECREASED APPETITE [None]
